FAERS Safety Report 5409562-9 (Version None)
Quarter: 2007Q3

REPORT INFORMATION
  Report Type: 
  Country: None (occurrence: None)
  Receive Date: 20070809
  Receipt Date: 20070731
  Transmission Date: 20080115
  Serious: Yes (Death)
  Sender: FDA-Public Use
  Company Number: CZ-BAXTER-2007BH006821

PATIENT

DRUGS (2)
  1. FEIBA VH IMMUNO [Suspect]
     Indication: FACTOR VIII DEFICIENCY
     Dosage: DOSE UNIT:UNKNOWN
     Route: 065
  2. PREDNISONE [Suspect]
     Indication: IMMUNOSUPPRESSION
     Dosage: DOSE UNIT:UNKNOWN
     Route: 065

REACTIONS (1)
  - MYOCARDIAL INFARCTION [None]
